FAERS Safety Report 21189802 (Version 2)
Quarter: 2023Q1

REPORT INFORMATION
  Report Type: Report from Study
  Country: CA (occurrence: CA)
  Receive Date: 20220809
  Receipt Date: 20230219
  Transmission Date: 20230417
  Serious: Yes (Other)
  Sender: FDA-Public Use
  Company Number: CA-NOVARTISPH-NVSC2022CA178023

PATIENT
  Age: 72 Year
  Sex: Male
  Weight: 80 kg

DRUGS (2)
  1. PIRFENIDONE [Suspect]
     Active Substance: PIRFENIDONE
     Indication: Pulmonary fibrosis
     Dosage: UNK
     Route: 065
  2. PIRFENIDONE [Suspect]
     Active Substance: PIRFENIDONE
     Dosage: UNK
     Route: 048
     Dates: start: 20220804

REACTIONS (11)
  - Progressive massive fibrosis [Unknown]
  - Lung opacity [Unknown]
  - Interstitial lung disease [Unknown]
  - Pulmonary artery dilatation [Unknown]
  - Bronchiectasis [Unknown]
  - Pulmonary arterial hypertension [Unknown]
  - COVID-19 [Unknown]
  - Lymphadenopathy mediastinal [Unknown]
  - Cardiomegaly [Unknown]
  - Forced vital capacity decreased [Unknown]
  - Condition aggravated [Unknown]

NARRATIVE: CASE EVENT DATE: 20220501
